FAERS Safety Report 14977782 (Version 1)
Quarter: 2018Q2

REPORT INFORMATION
  Report Type: Spontaneous
  Country: US (occurrence: US)
  Receive Date: 20180606
  Receipt Date: 20180606
  Transmission Date: 20180711
  Serious: Yes (Other)
  Sender: FDA-Public Use
  Company Number: US-BEH-2018091273

PATIENT
  Sex: Female
  Weight: 81.63 kg

DRUGS (34)
  1. PLAQUENIL                          /00072602/ [Concomitant]
     Active Substance: HYDROXYCHLOROQUINE DIPHOSPHATE
  2. XYZAL [Concomitant]
     Active Substance: LEVOCETIRIZINE DIHYDROCHLORIDE
  3. QUINACRINE [Concomitant]
     Active Substance: QUINACRINE
  4. KLONOPIN [Concomitant]
     Active Substance: CLONAZEPAM
  5. AUGMENTIN [Concomitant]
     Active Substance: AMOXICILLIN\CLAVULANATE POTASSIUM
  6. EPINEPHRINE. [Concomitant]
     Active Substance: EPINEPHRINE
  7. VENOFER [Concomitant]
     Active Substance: IRON SUCROSE
  8. CYANOCOBALAMIN. [Concomitant]
     Active Substance: CYANOCOBALAMIN
  9. HIZENTRA [Suspect]
     Active Substance: HUMAN IMMUNOGLOBULIN G
     Indication: HYPOGAMMAGLOBULINAEMIA
     Dosage: 19 G, QW
     Route: 058
     Dates: start: 20110310
  10. HIZENTRA [Suspect]
     Active Substance: HUMAN IMMUNOGLOBULIN G
     Dosage: UNK
     Route: 058
  11. DOXYCYCLINE. [Concomitant]
     Active Substance: DOXYCYCLINE
  12. COUMADIN [Concomitant]
     Active Substance: WARFARIN SODIUM
  13. INVANZ [Concomitant]
     Active Substance: ERTAPENEM SODIUM
  14. HIZENTRA [Suspect]
     Active Substance: HUMAN IMMUNOGLOBULIN G
     Dosage: UNK
     Route: 058
  15. BYSTOLIC [Concomitant]
     Active Substance: NEBIVOLOL HYDROCHLORIDE
  16. NEXIUM [Concomitant]
     Active Substance: ESOMEPRAZOLE MAGNESIUM
  17. IMURAN [Concomitant]
     Active Substance: AZATHIOPRINE
  18. CEFDINIR. [Concomitant]
     Active Substance: CEFDINIR
  19. DIPHENHYDRAMINE. [Concomitant]
     Active Substance: DIPHENHYDRAMINE
  20. LINEZOLID. [Concomitant]
     Active Substance: LINEZOLID
  21. NORVASC [Concomitant]
     Active Substance: AMLODIPINE BESYLATE
  22. ZOLOFT [Concomitant]
     Active Substance: SERTRALINE HYDROCHLORIDE
  23. ABILIFY [Concomitant]
     Active Substance: ARIPIPRAZOLE
  24. CEFTRIAXONE. [Concomitant]
     Active Substance: CEFTRIAXONE
  25. TOPAMAX [Concomitant]
     Active Substance: TOPIRAMATE
  26. PREDNISONE. [Concomitant]
     Active Substance: PREDNISONE
  27. HIZENTRA [Suspect]
     Active Substance: HUMAN IMMUNOGLOBULIN G
     Dosage: UNK
     Route: 058
  28. CEFAZOLIN [Concomitant]
     Active Substance: CEFAZOLIN
  29. ACETAMINOPHEN. [Concomitant]
     Active Substance: ACETAMINOPHEN
  30. ZANAFLEX [Concomitant]
     Active Substance: TIZANIDINE HYDROCHLORIDE
  31. FOLIC ACID. [Concomitant]
     Active Substance: FOLIC ACID
  32. CLINDAMYCIN. [Concomitant]
     Active Substance: CLINDAMYCIN
  33. KLOR-CON [Concomitant]
     Active Substance: POTASSIUM CHLORIDE
  34. LEVOTHYROXINE. [Concomitant]
     Active Substance: LEVOTHYROXINE

REACTIONS (1)
  - Osteomyelitis [Unknown]
